FAERS Safety Report 6606419-2 (Version None)
Quarter: 2010Q1

REPORT INFORMATION
  Report Type: 
  Country: None (occurrence: None)
  Receive Date: 20100226
  Receipt Date: 20100219
  Transmission Date: 20100710
  Serious: No
  Sender: FDA-Public Use
  Company Number: JP-ASTRAZENECA-2010SE07473

PATIENT
  Age: 58 Year
  Sex: Male

DRUGS (1)
  1. QUETIAPINE FUMARATE [Suspect]
     Route: 048
     Dates: start: 20091113

REACTIONS (1)
  - PLATELET COUNT DECREASED [None]
